FAERS Safety Report 13589714 (Version 1)
Quarter: 2017Q2

REPORT INFORMATION
  Report Type: Spontaneous
  Country: US (occurrence: US)
  Receive Date: 20170530
  Receipt Date: 20170530
  Transmission Date: 20170830
  Serious: No
  Sender: FDA-Public Use
  Company Number: US-WEST-WARD PHARMACEUTICALS CORP.-US-H14001-17-00470

PATIENT
  Sex: Male

DRUGS (1)
  1. TESTOSTERONE CYPIONATE INJECTION USP [Suspect]
     Active Substance: TESTOSTERONE CYPIONATE
     Indication: HYPOGONADISM
     Route: 030
     Dates: start: 2017, end: 2017

REACTIONS (5)
  - Drug ineffective [Recovered/Resolved]
  - Depressed mood [Recovered/Resolved]
  - Libido decreased [Recovered/Resolved]
  - Erectile dysfunction [Recovered/Resolved]
  - Asthenia [Recovered/Resolved]
